FAERS Safety Report 8985099 (Version 2)
Quarter: 2013Q1

REPORT INFORMATION
  Report Type: Report from Study
  Country: AU (occurrence: AU)
  Receive Date: 20121226
  Receipt Date: 20130108
  Transmission Date: 20140127
  Serious: Yes (Other)
  Sender: FDA-Public Use
  Company Number: PHHY2012AU118305

PATIENT
  Age: 48 Year
  Sex: Female

DRUGS (7)
  1. CLOZARIL [Suspect]
     Dosage: 625 MG, EACH NIGHT
     Dates: start: 20121218, end: 20121219
  2. FLUPENTHIXOL [Concomitant]
     Indication: SCHIZOPHRENIA
     Dosage: 40 MG, FORENIGHTLY
     Route: 030
  3. VENLAFAXINE [Concomitant]
     Indication: DEPRESSION
     Dosage: 150 MG, QD
     Route: 048
  4. QUETIAPINE [Concomitant]
     Indication: SCHIZOPHRENIA
     Dosage: 1200 MG (400 MG, MANE, 800 MG NOCTE)
     Route: 048
  5. GLICLAZIDE [Concomitant]
     Indication: DIABETES MELLITUS
     Dosage: 60 MG, QD
     Route: 048
  6. METFORMIN [Concomitant]
     Indication: DIABETES MELLITUS
     Dosage: 50 MG, BID
  7. SITAGLIPTIN [Concomitant]
     Indication: DIABETES MELLITUS
     Dosage: 100 MG, BID
     Route: 048

REACTIONS (3)
  - Accidental exposure to product [Unknown]
  - Confusional state [Unknown]
  - Somnolence [Unknown]
